FAERS Safety Report 8240302-4 (Version None)
Quarter: 2012Q1

REPORT INFORMATION
  Report Type: 
  Country: None (occurrence: None)
  Receive Date: 20120328
  Receipt Date: 20120320
  Transmission Date: 20120608
  Serious: Yes (Other)
  Sender: FDA-Public Use
  Company Number: US-ELI_LILLY_AND_COMPANY-US201202004252

PATIENT
  Sex: Female
  Weight: 51 kg

DRUGS (6)
  1. FORTEO [Suspect]
     Indication: OSTEOPOROSIS
     Dosage: 20 UG, QD
     Route: 058
     Dates: end: 20120118
  2. RIFAXIMIN [Concomitant]
     Indication: GASTROINTESTINAL DISORDER
     Dosage: 550 MG, 2/W
     Dates: start: 20111201, end: 20120114
  3. NIACIN [Concomitant]
     Dosage: 500 MG, QD
  4. M.V.I. [Concomitant]
  5. CALCIUM W/VITAMIN D                /06836201/ [Concomitant]
     Dosage: 500 MG, QD
  6. VITAMIN D [Concomitant]
     Dosage: UNK, QD

REACTIONS (2)
  - NEUTROPENIA [None]
  - LEUKOPENIA [None]
